FAERS Safety Report 15322251 (Version 5)
Quarter: 2021Q4

REPORT INFORMATION
  Report Type: Spontaneous
  Country: FR (occurrence: FR)
  Receive Date: 20180827
  Receipt Date: 20211025
  Transmission Date: 20220303
  Serious: Yes (Hospitalization, Other)
  Sender: FDA-Public Use
  Company Number: PHHY2017FR204586

PATIENT
  Age: 43 Year
  Sex: Male

DRUGS (39)
  1. NEORAL [Suspect]
     Active Substance: CYCLOSPORINE
     Indication: Prophylaxis against transplant rejection
     Dosage: 80 MG, QD
     Route: 048
     Dates: start: 2017
  2. NEORAL [Suspect]
     Active Substance: CYCLOSPORINE
     Dosage: 40 MG
     Route: 048
  3. MYCOPHENOLATE MOFETIL [Suspect]
     Active Substance: MYCOPHENOLATE MOFETIL
     Indication: Prophylaxis against transplant rejection
     Dosage: 1000 MG, Q12H
     Route: 048
     Dates: start: 2017
  4. ACETAMINOPHEN [Suspect]
     Active Substance: ACETAMINOPHEN
     Indication: Pain
     Dosage: 3 G, QD
     Route: 048
     Dates: start: 2017
  5. URAPIDIL [Suspect]
     Active Substance: URAPIDIL
     Indication: Hypertension
     Dosage: 2 MG, QH
     Route: 042
     Dates: start: 201703, end: 20170330
  6. ACUPAN [Suspect]
     Active Substance: NEFOPAM HYDROCHLORIDE
     Indication: Pain
     Dosage: 20 MG, Q6H
     Route: 042
     Dates: start: 2017
  7. AMINO ACIDS\DEXTROSE\ELECTROLYTES NOS\SOYBEAN OIL [Suspect]
     Active Substance: AMINO ACIDS\DEXTROSE\ELECTROLYTES NOS\SOYBEAN OIL
     Indication: Parenteral nutrition
     Dosage: 80 ML, QH
     Route: 042
     Dates: start: 2017, end: 2017
  8. BACTRIM [Suspect]
     Active Substance: SULFAMETHOXAZOLE\TRIMETHOPRIM
     Indication: Pneumocystis jirovecii pneumonia
     Dosage: 800 MG, QD
     Route: 048
     Dates: start: 201703, end: 20170526
  9. SOLU-MEDROL [Suspect]
     Active Substance: METHYLPREDNISOLONE SODIUM SUCCINATE
     Indication: Product used for unknown indication
     Dosage: 160 MG, QD
     Route: 042
     Dates: start: 2017, end: 20170609
  10. AMIKACIN [Suspect]
     Active Substance: AMIKACIN
     Indication: Product used for unknown indication
     Dosage: UNK
     Route: 042
     Dates: start: 20170403
  11. AMIKACIN [Suspect]
     Active Substance: AMIKACIN
     Dosage: UNK
     Route: 042
     Dates: start: 20170526, end: 20170529
  12. AMIKACIN [Suspect]
     Active Substance: AMIKACIN
     Dosage: UNK
     Route: 042
     Dates: start: 20170607, end: 20170610
  13. AMIKACIN [Suspect]
     Active Substance: AMIKACIN
     Dosage: UNK
     Route: 042
     Dates: start: 20170808
  14. AMIKACIN [Suspect]
     Active Substance: AMIKACIN
     Dosage: UNK
     Route: 042
     Dates: start: 20180421, end: 20180424
  15. ZERBAXA [Suspect]
     Active Substance: CEFTOLOZANE SULFATE\TAZOBACTAM SODIUM
     Indication: Cellulitis
     Dosage: 3 G, QD
     Route: 042
     Dates: start: 20170331
  16. CILASTATIN SODIUM\IMIPENEM [Suspect]
     Active Substance: CILASTATIN SODIUM\IMIPENEM
     Indication: Product used for unknown indication
     Dosage: 500 MG, Q8H
     Route: 042
     Dates: start: 201703, end: 20170403
  17. GANCICLOVIR [Suspect]
     Active Substance: GANCICLOVIR
     Indication: Prophylaxis
     Dosage: UNK
     Route: 042
     Dates: start: 20170330, end: 20170504
  18. PHLOROGLUCINOL\1,3,5-TRIMETHOXYBENZENE [Suspect]
     Active Substance: PHLOROGLUCINOL\1,3,5-TRIMETHOXYBENZENE
     Indication: Abdominal pain
     Dosage: 6 DF, QD
     Route: 048
     Dates: start: 2017
  19. PHLOROGLUCINOL\1,3,5-TRIMETHOXYBENZENE [Suspect]
     Active Substance: PHLOROGLUCINOL\1,3,5-TRIMETHOXYBENZENE
     Dosage: 2 DF, QD
     Route: 048
     Dates: start: 2017
  20. PHLOROGLUCINOL\1,3,5-TRIMETHOXYBENZENE [Suspect]
     Active Substance: PHLOROGLUCINOL\1,3,5-TRIMETHOXYBENZENE
     Dosage: 15 MG, QD
     Route: 048
     Dates: start: 2017, end: 20170509
  21. RACECADOTRIL [Suspect]
     Active Substance: RACECADOTRIL
     Indication: Diarrhoea
     Dosage: 600 MG, QD
     Route: 048
     Dates: start: 2017
  22. MAGNESIUM ALGINATE [Suspect]
     Active Substance: MAGNESIUM ALGINATE
     Indication: Gastrooesophageal reflux disease
     Dosage: 1 DF, Q8H
     Route: 048
     Dates: start: 2017
  23. LINEZOLID [Suspect]
     Active Substance: LINEZOLID
     Indication: Product used for unknown indication
     Dosage: 600 MG, Q12H
     Route: 042
     Dates: start: 201703, end: 20170430
  24. URSODIOL [Suspect]
     Active Substance: URSODIOL
     Indication: Product used for unknown indication
     Dosage: 200 MG
     Route: 048
     Dates: start: 20170331
  25. CANCIDAS [Suspect]
     Active Substance: CASPOFUNGIN ACETATE
     Indication: Fungal infection
     Dosage: 70 MG, QD
     Route: 042
     Dates: start: 201703
  26. EUPANTOL [Suspect]
     Active Substance: PANTOPRAZOLE SODIUM
     Indication: Gastrooesophageal reflux disease
     Dosage: 40 MG, QD
     Route: 042
     Dates: start: 2017
  27. POTASSIUM BICARBONATE\SODIUM ALGINATE [Suspect]
     Active Substance: POTASSIUM BICARBONATE\SODIUM ALGINATE
     Indication: Gastrooesophageal reflux disease
     Dosage: 3 DF, QD
     Route: 048
     Dates: start: 2017
  28. KEPPRA [Suspect]
     Active Substance: LEVETIRACETAM
     Indication: Epilepsy
     Dosage: 1000 MG, QD
     Route: 048
     Dates: start: 20170422
  29. DITROPAN [Suspect]
     Active Substance: OXYBUTYNIN CHLORIDE
     Indication: Product used for unknown indication
     Dosage: 5 MG, TID
     Route: 048
     Dates: start: 2017, end: 20170509
  30. HYDROCORTISONE [Suspect]
     Active Substance: HYDROCORTISONE
     Indication: Product used for unknown indication
     Dosage: UNK
     Route: 065
  31. SODIUM ALGINATE [Suspect]
     Active Substance: SODIUM ALGINATE
     Indication: Gastrooesophageal reflux disease
     Dosage: 1 DF, Q8H
     Route: 048
     Dates: start: 2017
  32. VALACYCLOVIR HYDROCHLORIDE [Suspect]
     Active Substance: VALACYCLOVIR HYDROCHLORIDE
     Indication: Prophylaxis
     Dosage: UNK
     Route: 048
     Dates: start: 20170504
  33. BISOPROLOL [Concomitant]
     Active Substance: BISOPROLOL
     Indication: Prophylaxis
     Dosage: UNK
     Route: 048
     Dates: start: 20170531
  34. AMLODIPINE BESYLATE [Concomitant]
     Active Substance: AMLODIPINE BESYLATE
     Indication: Epilepsy
     Dosage: 1000 MG, QD
     Route: 048
     Dates: start: 20170526
  35. RAMIPRIL [Concomitant]
     Active Substance: RAMIPRIL
     Indication: Prophylaxis against transplant rejection
     Dosage: 2000 MG, QD
     Route: 065
     Dates: start: 20170331
  36. CELLCEPT [Concomitant]
     Active Substance: MYCOPHENOLATE MOFETIL\MYCOPHENOLATE MOFETIL HYDROCHLORIDE
     Indication: Prophylaxis against transplant rejection
     Dosage: 2000 MG, QD
     Route: 048
     Dates: start: 2017
  37. YDRALBUM [Concomitant]
     Active Substance: ALBUMIN HUMAN
     Indication: Product used for unknown indication
     Dosage: UNK
     Route: 065
  38. TARGOCID [Concomitant]
     Active Substance: TEICOPLANIN
     Indication: Product used for unknown indication
     Dosage: UNK
     Route: 065
     Dates: start: 20170524, end: 20170529
  39. ATOVAQUONE [Concomitant]
     Active Substance: ATOVAQUONE
     Indication: Product used for unknown indication
     Dosage: UNK
     Route: 065
     Dates: start: 20170526

REACTIONS (5)
  - Pancytopenia [Recovered/Resolved]
  - Amnesia [Not Recovered/Not Resolved]
  - Confusional state [Not Recovered/Not Resolved]
  - Pneumocystis jirovecii pneumonia [Unknown]
  - Cellulitis [Unknown]
